FAERS Safety Report 4278966-2 (Version None)
Quarter: 2004Q1

REPORT INFORMATION
  Report Type: 
  Country: None (occurrence: None)
  Receive Date: 20040126
  Receipt Date: 20040120
  Transmission Date: 20041129
  Serious: Yes (Other)
  Sender: FDA-Public Use
  Company Number: DE-ROCHE-356536

PATIENT
  Age: 32 Year
  Sex: Female

DRUGS (2)
  1. PEGASYS [Suspect]
     Indication: HEPATITIS C
     Route: 065
  2. RIBAVIRIN [Concomitant]

REACTIONS (2)
  - ARRHYTHMIA [None]
  - CONGESTIVE CARDIOMYOPATHY [None]
